FAERS Safety Report 4748135-8 (Version None)
Quarter: 2005Q3

REPORT INFORMATION
  Report Type: 
  Country: None (occurrence: None)
  Receive Date: 20050816
  Receipt Date: 20050725
  Transmission Date: 20060218
  Serious: No
  Sender: FDA-Public Use
  Company Number: USA0508104394

PATIENT
  Age: 50 Year
  Sex: Female

DRUGS (9)
  1. CYMBALTA [Suspect]
     Indication: DYSAESTHESIA
     Dosage: 40 MG
     Dates: start: 20050228, end: 20050523
  2. CYMBALTA [Suspect]
     Indication: PAIN
     Dosage: 40 MG
     Dates: start: 20050228, end: 20050523
  3. TIZANIDINE HCL [Concomitant]
  4. DILTIAZEM [Concomitant]
  5. GABAPENTIN [Concomitant]
  6. VALIUM [Concomitant]
  7. PREMARIN [Concomitant]
  8. SYNTHROID [Concomitant]
  9. COPAXONE [Concomitant]

REACTIONS (2)
  - ALANINE AMINOTRANSFERASE INCREASED [None]
  - ASPARTATE AMINOTRANSFERASE INCREASED [None]
